FAERS Safety Report 24602473 (Version 1)
Quarter: 2024Q4

REPORT INFORMATION
  Report Type: Spontaneous
  Country: CA (occurrence: CA)
  Receive Date: 20241111
  Receipt Date: 20241111
  Transmission Date: 20250114
  Serious: Yes (Other)
  Sender: CELLTRION
  Company Number: CA-PFIZER INC-202400292989

PATIENT

DRUGS (13)
  1. INFLECTRA [Suspect]
     Active Substance: INFLIXIMAB-DYYB
     Indication: Crohn^s disease
     Dosage: UNK
     Route: 042
     Dates: start: 20241028, end: 20241028
  2. ALENDRONATE [Concomitant]
     Active Substance: ALENDRONATE SODIUM
     Dosage: 70 MG, 1X/DAY
     Route: 065
  3. CALCITE [CALCIUM CITRATE] [Concomitant]
     Dosage: 500 MG, 2X/DAY
     Route: 065
  4. CITALOPRAM [Concomitant]
     Active Substance: CITALOPRAM
     Dosage: 20 MG, 1X/DAY
     Route: 065
  5. ELIQUIS [Concomitant]
     Active Substance: APIXABAN
     Dosage: 5 MG, 2X/DAY
     Route: 065
  6. FAMOTIDINE [Concomitant]
     Active Substance: FAMOTIDINE
     Dosage: 20 MG, 2X/DAY
     Route: 065
  7. FUROSEMIDE [Concomitant]
     Active Substance: FUROSEMIDE
     Dosage: 20 MG, 2X/DAY
     Route: 065
  8. OXAZEPAM [Concomitant]
     Active Substance: OXAZEPAM
     Dosage: 15 MG, HS
     Route: 065
  9. PROPRANOLOL [Concomitant]
     Active Substance: PROPRANOLOL HYDROCHLORIDE
     Dosage: 20 MG, 1X/DAY
     Route: 065
  10. RABEPRAZOLE [Concomitant]
     Active Substance: RABEPRAZOLE
     Dosage: 20 MG, 1X/DAY
     Route: 065
  11. SPIROTON [Concomitant]
     Dosage: 25 MG, 1X/DAY, 0.5 CO
     Route: 065
  12. ULTRA PROBIOTIC 25B [Concomitant]
     Dosage: 1 DF, 1X/DAY, 1 INHALATION - PUMP
     Route: 055
  13. VITAMIN B12 [Concomitant]
     Active Substance: CYANOCOBALAMIN
     Dosage: 1200 UG, 3X/WEEK
     Route: 048

REACTIONS (9)
  - Pruritus [Recovered/Resolved]
  - Nervousness [Recovered/Resolved]
  - Tremor [Recovered/Resolved]
  - Scratch [Recovered/Resolved]
  - Blood pressure systolic increased [Recovered/Resolved]
  - Heart rate decreased [Recovered/Resolved]
  - Respiratory rate increased [Recovered/Resolved]
  - Restlessness [Recovered/Resolved]
  - Arthralgia [Not Recovered/Not Resolved]

NARRATIVE: CASE EVENT DATE: 20240101
